FAERS Safety Report 7362620-4 (Version None)
Quarter: 2011Q1

REPORT INFORMATION
  Report Type: 
  Country: None (occurrence: None)
  Receive Date: 20110320
  Receipt Date: 20100928
  Transmission Date: 20110831
  Serious: Yes (Other)
  Sender: FDA-Public Use
  Company Number: US-BAYER-201033582NA

PATIENT
  Sex: Female
  Weight: 90.703 kg

DRUGS (8)
  1. PREVACID [Concomitant]
  2. BEXTRA [Concomitant]
  3. OCELLA [Suspect]
     Indication: ACNE
     Dosage: UNK
     Dates: start: 20010101, end: 20030101
  4. DIOVAN [Concomitant]
  5. YASMIN [Suspect]
     Indication: ACNE
     Dosage: UNK
     Dates: start: 20010101, end: 20030101
  6. UNCODEABLE ^UNCLASSIFIABLE^ [Concomitant]
  7. YAZ [Suspect]
     Indication: ACNE
     Dosage: UNK
     Dates: start: 20010101, end: 20030101
  8. UNCODEABLE ^UNCLASSIFIABLE^ [Concomitant]

REACTIONS (7)
  - PAIN [None]
  - NAUSEA [None]
  - GALLBLADDER DISORDER [None]
  - GALLBLADDER CHOLESTEROLOSIS [None]
  - CHOLECYSTITIS CHRONIC [None]
  - INJURY [None]
  - ABDOMINAL DISCOMFORT [None]
